FAERS Safety Report 7882406-1 (Version None)
Quarter: 2011Q4

REPORT INFORMATION
  Report Type: 
  Country: None (occurrence: None)
  Receive Date: 20111101
  Receipt Date: 20111101
  Transmission Date: 20120403
  Serious: Yes (Hospitalization)
  Sender: FDA-Public Use
  Company Number: US-B.I. PHARMACEUTICALS,INC./RIDGEFIELD-2011-BP-22363BP

PATIENT
  Age: 58 Year
  Sex: Female

DRUGS (1)
  1. PRADAXA [Suspect]
     Indication: ATRIAL FIBRILLATION
     Dosage: 300 MG
     Route: 048
     Dates: start: 20110914, end: 20110915

REACTIONS (3)
  - ACTIVATED PARTIAL THROMBOPLASTIN TIME ABNORMAL [None]
  - HAEMATURIA [None]
  - OCCULT BLOOD POSITIVE [None]
